FAERS Safety Report 21191671 (Version 1)
Quarter: 2022Q3

REPORT INFORMATION
  Report Type: Spontaneous
  Country: US (occurrence: US)
  Receive Date: 20220809
  Receipt Date: 20220809
  Transmission Date: 20221026
  Serious: No
  Sender: FDA-Public Use
  Company Number: US-PHARMAAND-2022PHR00017

PATIENT
  Sex: Male
  Weight: 83.9 kg

DRUGS (3)
  1. PEGASYS [Suspect]
     Active Substance: PEGINTERFERON ALFA-2A
     Indication: Hepatitis C
     Dosage: UNK
  2. PEGINTRON [Suspect]
     Active Substance: PEGINTERFERON ALFA-2B
     Indication: Hepatitis C
  3. INTERFERON [Suspect]
     Active Substance: INTERFERON
     Indication: Hepatitis C

REACTIONS (4)
  - Hair disorder [Not Recovered/Not Resolved]
  - Lip injury [Not Recovered/Not Resolved]
  - Ingrown hair [Not Recovered/Not Resolved]
  - Herpes zoster [Unknown]
